FAERS Safety Report 5072660-6 (Version None)
Quarter: 2006Q3

REPORT INFORMATION
  Report Type: 
  Country: None (occurrence: None)
  Receive Date: 20060807
  Receipt Date: 20060725
  Transmission Date: 20061208
  Serious: Yes (Hospitalization)
  Sender: FDA-Public Use
  Company Number: TZ-GLAXOSMITHKLINE-B0433229A

PATIENT
  Age: 39 Year
  Sex: Female
  Weight: 77 kg

DRUGS (5)
  1. COMBIVIR [Suspect]
     Indication: HIV INFECTION
     Dosage: 1TAB TWICE PER DAY
     Route: 048
     Dates: start: 20060404
  2. EFAVIRENZ [Suspect]
     Indication: HIV INFECTION
     Dosage: 600MG FOUR TIMES PER DAY
     Route: 048
     Dates: start: 20060404, end: 20060718
  3. CO TRIMOXAZOLE [Concomitant]
  4. MULTI-VITAMIN [Concomitant]
  5. VITAMIN B COMPLEX CAP [Concomitant]

REACTIONS (7)
  - CHEST PAIN [None]
  - COUGH [None]
  - DYSPNOEA [None]
  - HYPOALBUMINAEMIA [None]
  - HYPOVENTILATION [None]
  - PLEURAL EFFUSION [None]
  - RESPIRATORY DISTRESS [None]
